FAERS Safety Report 6617699-1 (Version None)
Quarter: 2010Q1

REPORT INFORMATION
  Report Type: 
  Country: None (occurrence: None)
  Receive Date: 20100308
  Receipt Date: 20100222
  Transmission Date: 20100710
  Serious: Yes (Other)
  Sender: FDA-Public Use
  Company Number: PHEH2006US01291

PATIENT
  Sex: Female
  Weight: 99.773 kg

DRUGS (17)
  1. AREDIA [Suspect]
     Dosage: UNK
  2. ZOMETA [Suspect]
     Dosage: UNK, QMO
     Route: 042
     Dates: end: 20040301
  3. TAMOXIFEN CITRATE [Suspect]
  4. FARESTON [Concomitant]
  5. COUMADIN [Concomitant]
  6. MULTI-VITAMINS [Concomitant]
  7. CALCIUM CARBONATE [Concomitant]
  8. MAGNESIUM CARBONATE [Concomitant]
  9. FOLIC ACID [Concomitant]
  10. ASPIRIN [Concomitant]
  11. FEMARA [Concomitant]
  12. PROZAC [Concomitant]
  13. CELEBREX [Concomitant]
  14. SUDAFED 12 HOUR [Concomitant]
  15. ZYRTEC [Concomitant]
  16. CLARITIN [Concomitant]
  17. ARESTIN [Concomitant]
     Dosage: UNK

REACTIONS (60)
  - ABDOMINAL PAIN [None]
  - ABDOMINAL PAIN UPPER [None]
  - ABSCESS [None]
  - BACK PAIN [None]
  - BASAL CELL CARCINOMA [None]
  - BONE DENSITY DECREASED [None]
  - BONE DISORDER [None]
  - BONE TRIMMING [None]
  - BURSITIS [None]
  - CAROTID ARTERY STENOSIS [None]
  - CATARACT [None]
  - CHOLELITHIASIS [None]
  - COMPUTERISED TOMOGRAM ABNORMAL [None]
  - COUGH [None]
  - DEBRIDEMENT [None]
  - DILATATION VENTRICULAR [None]
  - DYSGEUSIA [None]
  - DYSPHAGIA [None]
  - EYELID OPERATION [None]
  - FISTULA [None]
  - GINGIVAL BLEEDING [None]
  - GINGIVAL DISORDER [None]
  - GLAUCOMA [None]
  - HEPATIC CYST [None]
  - HYPERBARIC OXYGEN THERAPY [None]
  - IMPAIRED HEALING [None]
  - INFLAMMATION [None]
  - LEFT VENTRICULAR HYPERTROPHY [None]
  - MASTITIS [None]
  - MITRAL VALVE INCOMPETENCE [None]
  - MUSCULOSKELETAL CHEST PAIN [None]
  - NASAL CONGESTION [None]
  - NECROSIS [None]
  - ORAL DISORDER [None]
  - ORAL PAIN [None]
  - OSTEOMYELITIS [None]
  - OSTEONECROSIS [None]
  - POSTNASAL DRIP [None]
  - PRESYNCOPE [None]
  - PRIMARY SEQUESTRUM [None]
  - PURULENCE [None]
  - RENAL CYST [None]
  - SENSITIVITY OF TEETH [None]
  - SEQUESTRECTOMY [None]
  - SINUS ANTROSTOMY [None]
  - SINUS DISORDER [None]
  - SINUS OPERATION [None]
  - SINUS POLYP DEGENERATION [None]
  - SINUSITIS [None]
  - SWELLING FACE [None]
  - TENDERNESS [None]
  - TOOTH DISORDER [None]
  - TOOTH EXTRACTION [None]
  - TOOTH FRACTURE [None]
  - TOOTH INFECTION [None]
  - TRICUSPID VALVE INCOMPETENCE [None]
  - UPPER LIMB FRACTURE [None]
  - VISION BLURRED [None]
  - VITREOUS DETACHMENT [None]
  - VITREOUS FLOATERS [None]
